FAERS Safety Report 16779884 (Version 1)
Quarter: 2019Q3

REPORT INFORMATION
  Report Type: Spontaneous
  Country: US (occurrence: US)
  Receive Date: 20190906
  Receipt Date: 20190906
  Transmission Date: 20191005
  Serious: No
  Sender: FDA-Public Use
  Company Number: US-PFIZER INC-2019385615

PATIENT
  Age: 55 Year
  Sex: Female

DRUGS (1)
  1. XELJANZ XR [Suspect]
     Active Substance: TOFACITINIB CITRATE
     Dosage: 11 MG UNSPECIFIED FREQUENCY
     Dates: start: 20190801

REACTIONS (4)
  - Pyrexia [Unknown]
  - Vomiting [Unknown]
  - Product dose omission [Unknown]
  - Diarrhoea [Unknown]
